FAERS Safety Report 9109520 (Version 1)
Quarter: 2013Q1

REPORT INFORMATION
  Report Type: Report from Study
  Country: US (occurrence: US)
  Receive Date: 20130222
  Receipt Date: 20130222
  Transmission Date: 20140127
  Serious: Yes (Hospitalization)
  Sender: FDA-Public Use
  Company Number: US-BRISTOL-MYERS SQUIBB COMPANY-16574444

PATIENT
  Age: 29 Year
  Sex: Male

DRUGS (2)
  1. MDX-1106 [Suspect]
     Indication: MALIGNANT MELANOMA
     Dosage: COURSES:11 ROUTE: IV PIGGY BACK?LAST DOSE ON 23AUG2012
     Route: 042
     Dates: start: 20110922
  2. IPILIMUMAB [Suspect]
     Indication: MALIGNANT MELANOMA
     Dosage: COURSES:5. ROUTE: IV PIGGY BACK?LAST DOSE ON 23AUG2012
     Route: 042
     Dates: start: 20110922

REACTIONS (1)
  - Appendix disorder [Recovered/Resolved]
